FAERS Safety Report 16704055 (Version 2)
Quarter: 2019Q3

REPORT INFORMATION
  Report Type: Spontaneous
  Country: DE (occurrence: DE)
  Receive Date: 20190814
  Receipt Date: 20190816
  Transmission Date: 20191004
  Serious: Yes (Death)
  Sender: FDA-Public Use
  Company Number: DE-PFIZER INC-2019343041

PATIENT
  Age: 73 Year
  Sex: Female
  Weight: 76 kg

DRUGS (6)
  1. ZOPICLONE [Interacting]
     Active Substance: ZOPICLONE
     Dosage: UNK
  2. AMLODIPINE BESILATE [Suspect]
     Active Substance: AMLODIPINE BESYLATE
     Dosage: UNK
  3. MIRTAZAPINE. [Interacting]
     Active Substance: MIRTAZAPINE
     Dosage: UNK
  4. CANDESARTAN. [Interacting]
     Active Substance: CANDESARTAN
     Dosage: UNK
  5. METOPROLOL. [Interacting]
     Active Substance: METOPROLOL
  6. FENTANYL. [Interacting]
     Active Substance: FENTANYL
     Dosage: 2 DF, (50 UG/H)
     Route: 062

REACTIONS (4)
  - Drug interaction [Fatal]
  - Toxicity to various agents [Fatal]
  - Asphyxia [Fatal]
  - Drug abuse [Fatal]
